FAERS Safety Report 15104620 (Version 2)
Quarter: 2018Q3

REPORT INFORMATION
  Report Type: Spontaneous
  Country: US (occurrence: US)
  Receive Date: 20180703
  Receipt Date: 20180812
  Transmission Date: 20181010
  Serious: No
  Sender: FDA-Public Use
  Company Number: US-UNITED THERAPEUTICS-UNT-2018-009384

PATIENT
  Sex: Female
  Weight: 45.81 kg

DRUGS (2)
  1. WARFARIN [Concomitant]
     Active Substance: WARFARIN
     Indication: PRODUCT USED FOR UNKNOWN INDICATION
     Route: 065
  2. REMODULIN [Suspect]
     Active Substance: TREPROSTINIL
     Indication: PULMONARY ARTERIAL HYPERTENSION
     Dosage: 0.013 ?G/KG, CONTINUING
     Route: 041
     Dates: start: 20150209

REACTIONS (10)
  - Pain in extremity [Not Recovered/Not Resolved]
  - Fatigue [Unknown]
  - Salivary hypersecretion [Recovering/Resolving]
  - Headache [Not Recovered/Not Resolved]
  - Dyspnoea [Unknown]
  - Palpitations [Unknown]
  - Pain in jaw [Recovered/Resolved]
  - Muscle spasms [Not Recovered/Not Resolved]
  - Feeling abnormal [Unknown]
  - Neck pain [Recovering/Resolving]
